FAERS Safety Report 9447199 (Version 1)
Quarter: 2013Q3

REPORT INFORMATION
  Report Type: Spontaneous
  Country: US (occurrence: US)
  Receive Date: 20130807
  Receipt Date: 20130807
  Transmission Date: 20140515
  Serious: No
  Sender: FDA-Public Use
  Company Number: US-AMGEN-USASP2013053215

PATIENT
  Age: 12 Year
  Sex: Male

DRUGS (1)
  1. ENBREL [Suspect]
     Indication: ANKYLOSING SPONDYLITIS
     Dosage: UNK MG, UNK
     Route: 065
     Dates: start: 20130723

REACTIONS (4)
  - Nervousness [Not Recovered/Not Resolved]
  - Pallor [Not Recovered/Not Resolved]
  - Chills [Not Recovered/Not Resolved]
  - Change of bowel habit [Not Recovered/Not Resolved]
